FAERS Safety Report 6178633-4 (Version None)
Quarter: 2009Q2

REPORT INFORMATION
  Report Type: 
  Country: None (occurrence: None)
  Receive Date: 20090430
  Receipt Date: 20090422
  Transmission Date: 20091009
  Serious: Yes (Other)
  Sender: FDA-Public Use
  Company Number: 2009SP005399

PATIENT
  Sex: Female

DRUGS (1)
  1. PEG-INTRON [Suspect]
     Indication: HEPATITIS C

REACTIONS (2)
  - CRYOGLOBULINAEMIA [None]
  - INFECTION [None]
